FAERS Safety Report 20425707 (Version 1)
Quarter: 2022Q1

REPORT INFORMATION
  Report Type: Report from Study
  Country: US (occurrence: US)
  Receive Date: 20220204
  Receipt Date: 20220204
  Transmission Date: 20220424
  Serious: No
  Sender: FDA-Public Use
  Company Number: US-EXELIXIS-CABO-21039573

PATIENT
  Age: 36 Year
  Sex: Female

DRUGS (1)
  1. CABOMETYX [Suspect]
     Active Substance: CABOZANTINIB S-MALATE
     Indication: Product used for unknown indication
     Dosage: 60 MG, QD
     Route: 048
     Dates: start: 20210407

REACTIONS (12)
  - Hypoaesthesia [Unknown]
  - Crepitations [Unknown]
  - Gait inability [Not Recovered/Not Resolved]
  - Oral mucosal eruption [Unknown]
  - Dry mouth [Unknown]
  - Ageusia [Unknown]
  - Neuropathy peripheral [Unknown]
  - Skin exfoliation [Unknown]
  - Stomatitis [Unknown]
  - Diarrhoea [Unknown]
  - Dysphonia [Unknown]
  - Constipation [Unknown]

NARRATIVE: CASE EVENT DATE: 20210416
